FAERS Safety Report 4288874-9 (Version None)
Quarter: 2004Q1

REPORT INFORMATION
  Report Type: 
  Country: None (occurrence: None)
  Receive Date: 20040203
  Receipt Date: 20031014
  Transmission Date: 20041129
  Serious: Yes (Hospitalization, Other)
  Sender: FDA-Public Use
  Company Number: 2003-109131-NL

PATIENT
  Sex: Female
  Weight: 70 kg

DRUGS (3)
  1. NUVARING [Suspect]
     Indication: CONTRACEPTION
     Dosage: DF DAILY
     Dates: start: 20030601
  2. LEXAPRO [Concomitant]
  3. PAXIL [Concomitant]

REACTIONS (1)
  - PULMONARY EMBOLISM [None]
